FAERS Safety Report 11938458 (Version 3)
Quarter: 2016Q2

REPORT INFORMATION
  Report Type: Spontaneous
  Country: US (occurrence: US)
  Receive Date: 20160122
  Receipt Date: 20160413
  Transmission Date: 20160815
  Serious: No
  Sender: FDA-Public Use
  Company Number: US-PFIZER INC-2016009350

PATIENT
  Age: 67 Year
  Sex: Female
  Weight: 108.86 kg

DRUGS (4)
  1. IBRANCE [Suspect]
     Active Substance: PALBOCICLIB
     Indication: BREAST CANCER METASTATIC
     Dosage: 125 MG, 1X/DAY
  2. LETROZOLE. [Concomitant]
     Active Substance: LETROZOLE
     Dosage: UNK, 1X/DAY
     Dates: start: 20150624, end: 20160229
  3. IBRANCE [Suspect]
     Active Substance: PALBOCICLIB
     Indication: BONE NEOPLASM
     Dosage: 125 MG, CYCLIC (ONCE A DAY FOR 21 DAYS)
     Dates: start: 20150721, end: 20160109
  4. FULVESTRANT [Concomitant]
     Active Substance: FULVESTRANT
     Dosage: UNK
     Dates: start: 20160316

REACTIONS (2)
  - Disease progression [Unknown]
  - Breast cancer metastatic [Unknown]

NARRATIVE: CASE EVENT DATE: 20160106
